FAERS Safety Report 9840159 (Version 1)
Quarter: 2014Q1

REPORT INFORMATION
  Report Type: Spontaneous
  Country: US (occurrence: None)
  Receive Date: 20140121
  Receipt Date: 20140121
  Transmission Date: 20141002
  Serious: Yes (Other)
  Sender: FDA-Public Use
  Company Number: None

PATIENT
  Age: 88 Year
  Sex: Male
  Weight: 113.5 kg

DRUGS (1)
  1. AMLODIPINE [Suspect]
     Route: 048
     Dates: start: 20130404, end: 20131114

REACTIONS (1)
  - Oedema peripheral [None]
